FAERS Safety Report 13741231 (Version 1)
Quarter: 2017Q3

REPORT INFORMATION
  Report Type: Spontaneous
  Country: US (occurrence: US)
  Receive Date: 20170711
  Receipt Date: 20170711
  Transmission Date: 20171127
  Serious: No
  Sender: FDA-Public Use
  Company Number: None

PATIENT
  Age: 6 Year
  Sex: Female
  Weight: 17.1 kg

DRUGS (4)
  1. GENERIC MULTIVITAMIN GUMMIES [Concomitant]
  2. MELATONIN [Concomitant]
     Active Substance: MELATONIN
  3. ZYRTEC [Concomitant]
     Active Substance: CETIRIZINE HYDROCHLORIDE
  4. METHYLPHENIDATE ER [Suspect]
     Active Substance: METHYLPHENIDATE
     Indication: ATTENTION DEFICIT/HYPERACTIVITY DISORDER
     Dosage: ?          OTHER STRENGTH:MG;QUANTITY:30 TABLET(S);?
     Route: 048
     Dates: start: 20160601, end: 20160608

REACTIONS (5)
  - Crying [None]
  - Irritability [None]
  - Heart rate increased [None]
  - Product substitution issue [None]
  - Drug dispensing error [None]

NARRATIVE: CASE EVENT DATE: 20160601
